FAERS Safety Report 8999141 (Version 1)
Quarter: 2013Q1

REPORT INFORMATION
  Report Type: Spontaneous
  Country: SG (occurrence: SG)
  Receive Date: 20130103
  Receipt Date: 20130103
  Transmission Date: 20140127
  Serious: Yes (Other)
  Sender: FDA-Public Use
  Company Number: SG-BAYER-2013-000676

PATIENT
  Age: 48 Year
  Sex: Male

DRUGS (4)
  1. AVELOX TABLET 400 MG [Suspect]
     Indication: INFLUENZA
     Dosage: UNK UNK, QD
     Route: 048
     Dates: start: 201208
  2. AVELOX TABLET 400 MG [Suspect]
     Indication: ASTHMA
     Dosage: 1 DF, QD
     Route: 048
     Dates: start: 20121217, end: 20121221
  3. DUROTUSS [Concomitant]
     Indication: COUGH
     Dosage: UNK
     Dates: start: 20121217, end: 20121221
  4. SYMBICORT [Concomitant]
     Indication: ASTHMA
     Dosage: UNK
     Dates: start: 20121217, end: 20121221

REACTIONS (1)
  - Skin lesion [None]
